FAERS Safety Report 6956793-2 (Version None)
Quarter: 2010Q3

REPORT INFORMATION
  Report Type: 
  Country: None (occurrence: None)
  Receive Date: 20100830
  Receipt Date: 20100824
  Transmission Date: 20110219
  Serious: Yes (Death)
  Sender: FDA-Public Use
  Company Number: PHHY2010US56764

PATIENT
  Sex: Female
  Weight: 38 kg

DRUGS (4)
  1. EXJADE [Suspect]
     Indication: MYELODYSPLASTIC SYNDROME
     Dosage: 750 MG, QD
     Route: 048
     Dates: start: 20090917
  2. OS-CAL [Concomitant]
  3. FOSAMAX [Concomitant]
  4. ASPIRIN [Concomitant]

REACTIONS (1)
  - DEATH [None]
